FAERS Safety Report 12544846 (Version 2)
Quarter: 2016Q3

REPORT INFORMATION
  Report Type: Spontaneous
  Country: JP (occurrence: JP)
  Receive Date: 20160711
  Receipt Date: 20160729
  Transmission Date: 20161109
  Serious: Yes (Hospitalization, Other)
  Sender: FDA-Public Use
  Company Number: JP-PFIZER INC-2016330860

PATIENT
  Age: 65 Year
  Sex: Female
  Weight: 45 kg

DRUGS (64)
  1. ADRIACIN [Suspect]
     Active Substance: DOXORUBICIN HYDROCHLORIDE
     Dosage: 255 MG, DAILY
     Route: 041
     Dates: start: 20160212, end: 20160212
  2. G LASTA [Suspect]
     Active Substance: PEGFILGRASTIM
     Indication: COLONY STIMULATING FACTOR PROPHYLAXIS
     Dosage: 3.6 MG,  1X/2WEEKS
     Route: 058
     Dates: start: 20160130, end: 20160130
  3. CYCLOPHOSPHAMIDE. [Suspect]
     Active Substance: CYCLOPHOSPHAMIDE
     Dosage: 2550 MG, DAILY
     Route: 041
     Dates: start: 20160226, end: 20160226
  4. DECADRON [Concomitant]
     Active Substance: DEXAMETHASONE
     Dosage: 4 MG, 2X/DAY
     Route: 048
     Dates: start: 20160212, end: 20160214
  5. SEISHOKU [Concomitant]
     Active Substance: SODIUM CHLORIDE
     Dosage: 20 ML, DAILY
     Route: 042
     Dates: start: 20160307, end: 20160307
  6. CIPROXAN [Concomitant]
     Active Substance: CIPROFLOXACIN
     Dosage: 200 MG, 2X/DAY
     Route: 048
     Dates: start: 20160131, end: 20160131
  7. ALOSENN [Concomitant]
     Active Substance: SENNA LEAF
     Dosage: 5 G, DAILY
     Route: 048
     Dates: start: 20160212, end: 20160218
  8. ALOSENN [Concomitant]
     Active Substance: SENNA LEAF
     Dosage: 5 G, DAILY
     Route: 048
     Dates: start: 20160311, end: 20160317
  9. MUCOSTA [Concomitant]
     Active Substance: REBAMIPIDE
     Dosage: 100 MG, DAILY
     Route: 048
     Dates: start: 20160226, end: 20160306
  10. SANPILO [Concomitant]
     Active Substance: PILOCARPINE HYDROCHLORIDE
     Dosage: 5 MG, DAILY
     Route: 047
     Dates: start: 20160308, end: 20160308
  11. RINDERON A [Concomitant]
     Active Substance: BETAMETHASONE SODIUM PHOSPHATE\NEOMYCIN SULFATE
     Dosage: 2 DF, UNK
     Dates: start: 20160306, end: 20160306
  12. PROMAC [Concomitant]
     Active Substance: NITROFURANTOIN
     Dosage: 75 MG, 2X/DAY
     Route: 048
     Dates: start: 20160311, end: 20160318
  13. CALONAL [Concomitant]
     Active Substance: ACETAMINOPHEN
     Dosage: 400 MG, 3X/DAY
     Route: 048
     Dates: start: 20160318, end: 20160318
  14. EMEND [Concomitant]
     Active Substance: APREPITANT
     Dosage: 80 MG, DAILY
     Route: 048
     Dates: start: 20160212, end: 20160213
  15. MAGMITT [Concomitant]
     Active Substance: MAGNESIUM OXIDE
     Dosage: 500 MG, 3X/DAY
     Route: 048
     Dates: start: 20160311, end: 20160317
  16. HIRUDOID [Concomitant]
     Active Substance: GLYCOSAMINOGLYCANS
     Dosage: 25 G, UNK
     Route: 061
     Dates: start: 20160311, end: 20160311
  17. LENDORMIN DAINIPPO [Concomitant]
     Active Substance: BROTIZOLAM
     Dosage: 25 MG, DAILY
     Route: 048
     Dates: start: 20160311, end: 20160317
  18. CRAVIT [Concomitant]
     Active Substance: LEVOFLOXACIN
     Dosage: 500 MG, DAILY
     Route: 048
     Dates: start: 20160318, end: 20160318
  19. EPIRUBICIN HCL [Suspect]
     Active Substance: EPIRUBICIN HYDROCHLORIDE
     Indication: BREAST CANCER
     Dosage: 140 MG, DAILY
     Route: 041
     Dates: start: 20151218, end: 20151218
  20. ADRIACIN [Suspect]
     Active Substance: DOXORUBICIN HYDROCHLORIDE
     Indication: BREAST CANCER
     Dosage: 255 MG, 1X/DAY
     Route: 041
     Dates: start: 20160129, end: 20160129
  21. G LASTA [Suspect]
     Active Substance: PEGFILGRASTIM
     Dosage: 3.6 MG,  1X/2WEEKS
     Route: 058
     Dates: start: 20160213, end: 20160213
  22. DECADRON [Concomitant]
     Active Substance: DEXAMETHASONE
     Dosage: 4 MG, 2X/DAY
     Route: 048
     Dates: start: 20160311, end: 20160313
  23. SEISHOKU [Concomitant]
     Active Substance: SODIUM CHLORIDE
     Dosage: 10 ML, 1X/2WEEKS
     Dates: start: 20160129, end: 20160226
  24. SEISHOKU [Concomitant]
     Active Substance: SODIUM CHLORIDE
     Dosage: 250 ML, DAILY
     Route: 041
     Dates: start: 20160311, end: 20160311
  25. SEISHOKU [Concomitant]
     Active Substance: SODIUM CHLORIDE
     Dosage: 100 MG, DAILY
     Route: 041
     Dates: start: 20160311, end: 20160311
  26. EMEND [Concomitant]
     Active Substance: APREPITANT
     Dosage: 80 MG, DAILY
     Route: 048
     Dates: start: 20160226, end: 20160226
  27. LOXOPROFEN [Concomitant]
     Active Substance: LOXOPROFEN
     Dosage: 50 MG, 3X/DAY
     Route: 048
     Dates: start: 20160129, end: 20160131
  28. SANPILO [Concomitant]
     Active Substance: PILOCARPINE HYDROCHLORIDE
     Dosage: 5 MG, DAILY
     Route: 047
     Dates: start: 20160226, end: 20160226
  29. DOCETAXEL. [Suspect]
     Active Substance: DOCETAXEL
     Indication: BREAST CANCER
     Dosage: 105 MG, DAILY
     Route: 041
     Dates: start: 20160311, end: 20160311
  30. CYCLOPHOSPHAMIDE. [Suspect]
     Active Substance: CYCLOPHOSPHAMIDE
     Dosage: 2550 MG, DAILY
     Route: 041
     Dates: start: 20160212, end: 20160212
  31. GRANISETRON [Concomitant]
     Active Substance: GRANISETRON
     Dosage: 3 MG, 1X/2WEEKS
     Dates: start: 20160129, end: 20160226
  32. DECADRON [Concomitant]
     Active Substance: DEXAMETHASONE
     Dosage: 4 MG, 2X/DAY
     Route: 048
     Dates: start: 20160226, end: 20160228
  33. ALOSENN [Concomitant]
     Active Substance: SENNA LEAF
     Dosage: 5 G, DAILY
     Route: 048
     Dates: start: 20160226, end: 20160303
  34. REBAMIPIDE [Concomitant]
     Active Substance: REBAMIPIDE
     Dosage: 100 MG, 3X/DAY
     Route: 048
     Dates: start: 20160129, end: 20160131
  35. GATIFLO [Concomitant]
     Active Substance: GATIFLOXACIN
     Dosage: 10 ML, UNK
     Route: 047
     Dates: start: 20160306, end: 20160306
  36. DECADRON [Concomitant]
     Active Substance: DEXAMETHASONE
     Dosage: 3.3 MG, 1X/2WEEKS
     Route: 041
     Dates: start: 20160129, end: 20160226
  37. DECADRON [Concomitant]
     Active Substance: DEXAMETHASONE
     Dosage: 4 MG, 2X/DAY
     Route: 048
     Dates: start: 20160129, end: 20160131
  38. SOLACET F [Concomitant]
     Dosage: 500 ML, DAILY
     Dates: start: 20160307, end: 20160307
  39. PRIMPERAN [Concomitant]
     Active Substance: METOCLOPRAMIDE HYDROCHLORIDE
     Dosage: 5 MG, 3X/DAY
     Route: 048
     Dates: start: 20160129, end: 20160202
  40. PRIMPERAN [Concomitant]
     Active Substance: METOCLOPRAMIDE HYDROCHLORIDE
     Dosage: 5 MG, 3X/DAY
     Route: 048
     Dates: start: 20160212, end: 20160216
  41. ALOSENN [Concomitant]
     Active Substance: SENNA LEAF
     Dosage: 5 G, DAILY
     Route: 048
     Dates: start: 20160129, end: 20160204
  42. ADRIACIN [Suspect]
     Active Substance: DOXORUBICIN HYDROCHLORIDE
     Dosage: 255 MG, DAILY
     Route: 041
     Dates: start: 20160226, end: 20160226
  43. 5-FU [Suspect]
     Active Substance: FLUOROURACIL
     Indication: BREAST CANCER
     Dosage: 700 MG, DAILY
     Route: 041
     Dates: start: 20151218, end: 20151218
  44. CYCLOPHOSPHAMIDE. [Suspect]
     Active Substance: CYCLOPHOSPHAMIDE
     Indication: BREAST CANCER
     Dosage: 700 MG, DAILY
     Route: 041
     Dates: start: 20151218, end: 20151218
  45. ISOTONIC SODIUM CHLORIDE SOLUTION [Concomitant]
     Active Substance: SODIUM CHLORIDE
     Dosage: 50 ML, 1X/2WEEKS
     Route: 041
     Dates: start: 20160129, end: 20160226
  46. FOSFOMYCIN SODIUM [Concomitant]
     Active Substance: FOSFOMYCIN SODIUM
     Dosage: 1 G, DAILY
     Route: 042
     Dates: start: 20160307, end: 20160307
  47. MAGMITT [Concomitant]
     Active Substance: MAGNESIUM OXIDE
     Dosage: 500 MG, 3X/DAY
     Route: 048
     Dates: start: 20160226, end: 20160303
  48. CRAVIT [Concomitant]
     Active Substance: LEVOFLOXACIN
     Dosage: 5 ML, 3X/DAY
     Route: 047
     Dates: start: 20160315, end: 20160315
  49. HIRUDOID [Concomitant]
     Active Substance: GLYCOSAMINOGLYCANS
     Dosage: 25 G, UNK
     Route: 061
     Dates: start: 20160311, end: 20160311
  50. G LASTA [Suspect]
     Active Substance: PEGFILGRASTIM
     Dosage: 3.6 MG,  1X/2WEEKS
     Route: 058
     Dates: start: 20160227, end: 20160227
  51. CYCLOPHOSPHAMIDE. [Suspect]
     Active Substance: CYCLOPHOSPHAMIDE
     Dosage: 2550 MG, DAILY
     Route: 041
     Dates: start: 20160129, end: 20160129
  52. DECADRON [Concomitant]
     Active Substance: DEXAMETHASONE
     Dosage: 6.5999999 MG, 1X/2WEEKS
     Route: 041
     Dates: start: 20160129, end: 20160226
  53. DECADRON [Concomitant]
     Active Substance: DEXAMETHASONE
     Dosage: 6.5999999 MG, 1X/DAY
     Route: 041
     Dates: start: 20160301, end: 20160301
  54. SEISHOKU [Concomitant]
     Active Substance: SODIUM CHLORIDE
     Dosage: 500 ML, 1X/2WEEKS
     Route: 041
     Dates: start: 20160212, end: 20160226
  55. LOXOPROFEN [Concomitant]
     Active Substance: LOXOPROFEN
     Dosage: 50 MG, DAILY
     Route: 048
     Dates: start: 20160226, end: 20160306
  56. G LASTA [Suspect]
     Active Substance: PEGFILGRASTIM
     Dosage: 3.6 MG,  1X/2WEEKS
     Route: 058
     Dates: start: 20160312, end: 20160312
  57. SEISHOKU [Concomitant]
     Active Substance: SODIUM CHLORIDE
     Dosage: 250 ML, DAILY
     Route: 041
     Dates: start: 20160129, end: 20160129
  58. CIPROXAN [Concomitant]
     Active Substance: CIPROFLOXACIN
     Dosage: 200 MG, 3X/DAY
     Route: 048
     Dates: start: 20160129, end: 20160130
  59. VOLTAREN [Concomitant]
     Active Substance: DICLOFENAC SODIUM
     Dosage: 50 MG, 5X/DAY
     Route: 054
     Dates: start: 20160129, end: 20160129
  60. EMEND [Concomitant]
     Active Substance: APREPITANT
     Dosage: 80 MG, DAILY
     Route: 048
     Dates: start: 20160129, end: 20160130
  61. MAGMITT [Concomitant]
     Active Substance: MAGNESIUM OXIDE
     Dosage: 500 MG, 3X/DAY
     Route: 048
     Dates: start: 20160212, end: 20160218
  62. BROTIZOLAM OD [Concomitant]
     Dosage: 25 MG, DAILY
     Route: 048
     Dates: start: 20160226, end: 20160303
  63. CRAVIT [Concomitant]
     Active Substance: LEVOFLOXACIN
     Dosage: 5 ML, 3X/DAY
     Route: 047
     Dates: start: 20160301, end: 20160301
  64. DICLOD [Concomitant]
     Active Substance: DICLOFENAC SODIUM
     Dosage: 10 ML, UNK
     Route: 047
     Dates: start: 20160306, end: 20160306

REACTIONS (3)
  - Febrile neutropenia [Unknown]
  - Interstitial lung disease [Recovered/Resolved]
  - Inappropriate schedule of drug administration [Unknown]

NARRATIVE: CASE EVENT DATE: 20160102
